FAERS Safety Report 9528294 (Version 4)
Quarter: 2013Q4

REPORT INFORMATION
  Report Type: Spontaneous
  Country: US (occurrence: US)
  Receive Date: 20130917
  Receipt Date: 20131107
  Transmission Date: 20140711
  Serious: No
  Sender: FDA-Public Use
  Company Number: US-PFIZER INC-2013265570

PATIENT
  Age: 57 Year
  Sex: Female
  Weight: 118 kg

DRUGS (4)
  1. CELEBREX [Suspect]
     Indication: SPONDYLITIS
     Dosage: 200 MG, DAILY
     Route: 048
     Dates: start: 201306
  2. CELEBREX [Suspect]
     Dosage: UNK
  3. METFORMIN [Concomitant]
     Indication: DIABETES MELLITUS
     Dosage: 1000 MG, 2X/DAY
  4. LOVASTATIN [Concomitant]
     Dosage: 10 MG, DAILY

REACTIONS (3)
  - Poor quality drug administered [Unknown]
  - Product physical issue [Unknown]
  - Drug ineffective [Unknown]
